FAERS Safety Report 18457815 (Version 1)
Quarter: 2020Q4

REPORT INFORMATION
  Report Type: Spontaneous
  Country: FR (occurrence: FR)
  Receive Date: 20201103
  Receipt Date: 20201103
  Transmission Date: 20210114
  Serious: Yes (Other)
  Sender: FDA-Public Use
  Company Number: FR-MYLANLABS-2020M1091343

PATIENT
  Age: 90 Year
  Sex: Female

DRUGS (1)
  1. LINEZOLID. [Suspect]
     Active Substance: LINEZOLID
     Indication: THERMAL BURN
     Dosage: UNK

REACTIONS (2)
  - Hyperlactacidaemia [Unknown]
  - Lactic acidosis [Unknown]
